FAERS Safety Report 12966203 (Version 1)
Quarter: 2016Q4

REPORT INFORMATION
  Report Type: Spontaneous
  Country: GB (occurrence: GB)
  Receive Date: 20161122
  Receipt Date: 20161122
  Transmission Date: 20170207
  Serious: Yes (Life-Threatening, Hospitalization, Other)
  Sender: FDA-Public Use
  Company Number: GB-SA-2016SA210689

PATIENT
  Age: 72 Year
  Sex: Male

DRUGS (13)
  1. NICORANDIL [Concomitant]
     Active Substance: NICORANDIL
  2. SERTRALINE [Concomitant]
     Active Substance: SERTRALINE HYDROCHLORIDE
  3. BISOPROLOL [Concomitant]
     Active Substance: BISOPROLOL
  4. ALFUZOSIN [Concomitant]
     Active Substance: ALFUZOSIN
  5. ALLOPURINOL. [Concomitant]
     Active Substance: ALLOPURINOL
  6. APIDRA [Concomitant]
     Active Substance: INSULIN GLULISINE
  7. WARFARIN [Suspect]
     Active Substance: WARFARIN
     Indication: ATRIAL FIBRILLATION
     Dosage: AS PER INTERNATIONAL NORMALIZED RATIO.
     Route: 048
     Dates: end: 20160706
  8. LANTUS [Concomitant]
     Active Substance: INSULIN GLARGINE
  9. MIRCERA [Concomitant]
     Active Substance: METHOXY POLYETHYLENE GLYCOL-EPOETIN BETA
  10. SODIUM BICARBONATE. [Concomitant]
     Active Substance: SODIUM BICARBONATE
  11. IRBESARTAN. [Suspect]
     Active Substance: IRBESARTAN
     Route: 048
     Dates: end: 20160706
  12. ALFACALCIDOL [Concomitant]
     Active Substance: ALFACALCIDOL
  13. ATORVASTATIN [Concomitant]
     Active Substance: ATORVASTATIN

REACTIONS (9)
  - Dyspnoea [Unknown]
  - International normalised ratio increased [Unknown]
  - Aortic stenosis [Unknown]
  - Left ventricular dysfunction [Unknown]
  - Fatigue [Unknown]
  - Melaena [Unknown]
  - Acute kidney injury [Recovered/Resolved]
  - Upper gastrointestinal haemorrhage [Recovered/Resolved]
  - Chest pain [Unknown]

NARRATIVE: CASE EVENT DATE: 20160706
